FAERS Safety Report 7704693-2 (Version None)
Quarter: 2011Q3

REPORT INFORMATION
  Report Type: 
  Country: None (occurrence: None)
  Receive Date: 20110823
  Receipt Date: 20110815
  Transmission Date: 20111222
  Serious: Yes (Hospitalization, Other)
  Sender: FDA-Public Use
  Company Number: US-ASTRAZENECA-2011SE48986

PATIENT
  Sex: Male

DRUGS (3)
  1. NEXIUM [Suspect]
     Route: 048
  2. PROVENTIL [Concomitant]
  3. SYMBICORT [Suspect]
     Route: 055

REACTIONS (3)
  - PNEUMOTHORAX [None]
  - LUNG OPERATION [None]
  - THORACOTOMY [None]
